FAERS Safety Report 24621360 (Version 2)
Quarter: 2024Q4

REPORT INFORMATION
  Report Type: Spontaneous
  Country: US (occurrence: US)
  Receive Date: 20241114
  Receipt Date: 20241127
  Transmission Date: 20250114
  Serious: Yes (Hospitalization)
  Sender: AVADEL CNS PHARMACEUTICALS, LLC
  Company Number: US-AVADEL CNS PHARMACEUTICALS, LLC-2024AVA02149

PATIENT
  Age: 69 Year
  Sex: Female

DRUGS (2)
  1. LUMRYZ [Suspect]
     Active Substance: SODIUM OXYBATE
     Indication: Narcolepsy
     Dosage: 7.5 G, ONCE NIGHTLY
     Route: 048
     Dates: start: 202311, end: 2024
  2. LUMRYZ [Suspect]
     Active Substance: SODIUM OXYBATE
     Dosage: 7.5 G, ONCE NIGHTLY
     Route: 048
     Dates: start: 2024, end: 20241111

REACTIONS (9)
  - Heart rate increased [Unknown]
  - Atrial fibrillation [Unknown]
  - Shoulder arthroplasty [Unknown]
  - Blood pressure increased [Unknown]
  - Poor quality sleep [Not Recovered/Not Resolved]
  - Insomnia [Not Recovered/Not Resolved]
  - Hunger [Not Recovered/Not Resolved]
  - Weight increased [Not Recovered/Not Resolved]
  - Product administration interrupted [Not Recovered/Not Resolved]

NARRATIVE: CASE EVENT DATE: 20241018
